FAERS Safety Report 11045543 (Version 3)
Quarter: 2015Q3

REPORT INFORMATION
  Report Type: Spontaneous
  Country: US (occurrence: US)
  Receive Date: 20150417
  Receipt Date: 20150923
  Transmission Date: 20151125
  Serious: No
  Sender: FDA-Public Use
  Company Number: US-009507513-1504USA017076

PATIENT
  Sex: Male

DRUGS (2)
  1. PROPECIA [Suspect]
     Active Substance: FINASTERIDE
     Indication: ALOPECIA
     Dosage: 1 MG, QD
     Route: 048
     Dates: start: 20040406, end: 2014
  2. PROPECIA [Suspect]
     Active Substance: FINASTERIDE
     Indication: ANDROGENETIC ALOPECIA

REACTIONS (19)
  - Anxiety [Not Recovered/Not Resolved]
  - Road traffic accident [Unknown]
  - Brain contusion [Unknown]
  - Retinal tear [Unknown]
  - Post concussion syndrome [Recovered/Resolved]
  - Libido decreased [Not Recovered/Not Resolved]
  - Weight increased [Unknown]
  - Weight decreased [Unknown]
  - Vitreous floaters [Unknown]
  - Depression [Not Recovered/Not Resolved]
  - Headache [Not Recovered/Not Resolved]
  - Angioedema [Recovered/Resolved]
  - Emotional distress [Not Recovered/Not Resolved]
  - Varicose vein [Unknown]
  - Muscle spasms [Unknown]
  - Concussion [Unknown]
  - Syncope [Recovered/Resolved]
  - Erectile dysfunction [Not Recovered/Not Resolved]
  - Sexual dysfunction [Not Recovered/Not Resolved]

NARRATIVE: CASE EVENT DATE: 2004
